FAERS Safety Report 7210401-4 (Version None)
Quarter: 2011Q1

REPORT INFORMATION
  Report Type: 
  Country: None (occurrence: None)
  Receive Date: 20110105
  Receipt Date: 20101228
  Transmission Date: 20110831
  Serious: Yes (Hospitalization, Other)
  Sender: FDA-Public Use
  Company Number: PHHO2010US17331

PATIENT
  Sex: Female
  Weight: 106.3 kg

DRUGS (7)
  1. FTY 720 [Suspect]
     Dosage: DOSE BLINDED
     Route: 048
  2. DESOGESTREL AND ETHINYL ESTRADIOL [Suspect]
     Indication: MENORRHAGIA
     Dosage: UNK
     Dates: start: 20080702
  3. FTY 720 [Suspect]
     Dosage: 0.5MG
     Route: 048
     Dates: start: 20090825, end: 20101110
  4. SEASONIQUE [Suspect]
     Indication: CONTRACEPTION
     Dosage: UNK
     Dates: start: 20080224
  5. HORMONES [Suspect]
  6. SEASONIQUE [Suspect]
     Indication: MENORRHAGIA
  7. TRIB [Suspect]
     Dosage: UNK
     Dates: start: 20030101

REACTIONS (11)
  - EXPLORATIVE LAPAROTOMY [None]
  - ADNEXA UTERI MASS [None]
  - MALIGNANT TUMOUR EXCISION [None]
  - ENDOMETRIAL CANCER [None]
  - LEIOMYOMA [None]
  - GAIT DISTURBANCE [None]
  - DYSMENORRHOEA [None]
  - MULTIPLE SCLEROSIS RELAPSE [None]
  - CONCOMITANT DISEASE PROGRESSION [None]
  - HYSTERECTOMY [None]
  - ANAEMIA [None]
